FAERS Safety Report 5407782-0 (Version None)
Quarter: 2007Q3

REPORT INFORMATION
  Report Type: 
  Country: None (occurrence: None)
  Receive Date: 20070807
  Receipt Date: 20070731
  Transmission Date: 20080115
  Serious: Yes (Other)
  Sender: FDA-Public Use
  Company Number: CH-SHR-CH-2007-022841

PATIENT
  Age: 44 Year
  Sex: Female
  Weight: 66 kg

DRUGS (4)
  1. MIRENA [Suspect]
     Dosage: 20 A?G/DAY, CONT
     Route: 015
     Dates: start: 20070508, end: 20070626
  2. TARDYFERON                              /GFR/ [Concomitant]
  3. PONSTAN [Concomitant]
  4. MAGNESIUM CITRATE [Concomitant]

REACTIONS (5)
  - CARPAL TUNNEL SYNDROME [None]
  - HEADACHE [None]
  - OEDEMA [None]
  - SLEEP DISORDER [None]
  - WEIGHT INCREASED [None]
